FAERS Safety Report 21791582 (Version 1)
Quarter: 2022Q4

REPORT INFORMATION
  Report Type: Spontaneous
  Country: IT (occurrence: IT)
  Receive Date: 20221228
  Receipt Date: 20221228
  Transmission Date: 20230112
  Serious: Yes (Death, Hospitalization, Other)
  Sender: FDA-Public Use
  Company Number: IT-BIOVITRUM-2022IT15183

PATIENT
  Age: 2 Month
  Sex: Male

DRUGS (3)
  1. DEXAMETHASONE [Suspect]
     Active Substance: DEXAMETHASONE
     Indication: Product used for unknown indication
     Route: 065
  2. GAMIFANT [Suspect]
     Active Substance: EMAPALUMAB-LZSG
     Indication: Product used for unknown indication
     Dosage: PATIENT GLOBALLY RECEIVED 6 INFUSIONS (DOSE 3 MG/KG, TWO TIMES PER WEEK)
     Route: 065
     Dates: start: 202211
  3. ANAKINRA [Suspect]
     Active Substance: ANAKINRA
     Indication: Familial haemophagocytic lymphohistiocytosis
     Route: 065

REACTIONS (6)
  - Bacterial sepsis [Fatal]
  - Hypotension [Fatal]
  - Brain death [Fatal]
  - Nervous system disorder [Fatal]
  - Generalised tonic-clonic seizure [Fatal]
  - Off label use [Unknown]

NARRATIVE: CASE EVENT DATE: 20221008
